FAERS Safety Report 13053064 (Version 1)
Quarter: 2016Q4

REPORT INFORMATION
  Report Type: Report from Study
  Country: CA (occurrence: CA)
  Receive Date: 20161222
  Receipt Date: 20161222
  Transmission Date: 20170207
  Serious: Yes (Other)
  Sender: FDA-Public Use
  Company Number: CA-TEVA-718950ACC

PATIENT
  Age: 31 Year
  Sex: Male

DRUGS (3)
  1. COPAXONE [Suspect]
     Active Substance: GLATIRAMER ACETATE
     Indication: MULTIPLE SCLEROSIS
     Dosage: 20 MILLIGRAM/MILLILITERS DAILY;
     Route: 058
     Dates: start: 20161129, end: 20161129
  2. VITAMIN D [Concomitant]
     Active Substance: CHOLECALCIFEROL
  3. OMEGA 3 COMPLEX [Concomitant]

REACTIONS (2)
  - Syncope [Unknown]
  - Neurogenic shock [Unknown]

NARRATIVE: CASE EVENT DATE: 201611
